FAERS Safety Report 5928766-X (Version None)
Quarter: 2008Q4

REPORT INFORMATION
  Report Type: 
  Country: None (occurrence: None)
  Receive Date: 20081021
  Receipt Date: 20081013
  Transmission Date: 20090506
  Serious: Yes (Hospitalization, Other)
  Sender: FDA-Public Use
  Company Number: 2008SP005153

PATIENT
  Age: 53 Year
  Sex: Female

DRUGS (5)
  1. PEG-INTRON [Suspect]
     Indication: HEPATITIS C
     Dosage: 1.5 MCG/KG; QW;
     Dates: start: 20040101, end: 20040101
  2. PEG-INTRON [Suspect]
     Indication: HEPATITIS C
     Dosage: 1.5 MCG/KG; QW;
     Dates: start: 20050201
  3. REBETOL [Suspect]
     Indication: HEPATITIS C
     Dosage: 1200 MG; QD;
     Dates: start: 20040101, end: 20040101
  4. REBETOL [Suspect]
     Indication: HEPATITIS C
     Dosage: 1200 MG; QD;
     Dates: start: 20050201
  5. AZATHIOPRINE [Suspect]
     Indication: COLITIS ULCERATIVE
     Dosage: 2 MG/KG; QD;
     Dates: start: 20040820

REACTIONS (3)
  - BONE MARROW TOXICITY [None]
  - DRUG INTERACTION [None]
  - PANCYTOPENIA [None]
